FAERS Safety Report 24694485 (Version 1)
Quarter: 2024Q4

REPORT INFORMATION
  Report Type: Spontaneous
  Country: DK (occurrence: DK)
  Receive Date: 20241204
  Receipt Date: 20241204
  Transmission Date: 20250115
  Serious: Yes (Life-Threatening, Hospitalization, Other)
  Sender: JOHNSON AND JOHNSON
  Company Number: None

PATIENT
  Age: 69 Year
  Sex: Male
  Weight: 86 kg

DRUGS (2)
  1. XARELTO [Suspect]
     Active Substance: RIVAROXABAN
     Indication: Thrombosis prophylaxis
     Dosage: 15 MG, QD
     Route: 048
     Dates: start: 20240919, end: 20241004
  2. IBUPROFEN [Concomitant]
     Active Substance: IBUPROFEN
     Indication: Inflammation
     Dosage: 400 MG
     Dates: start: 20221229

REACTIONS (5)
  - Cerebral haemorrhage [Recovering/Resolving]
  - Coordination abnormal [Unknown]
  - Disturbance in attention [Unknown]
  - Facial paresis [Unknown]
  - Monoparesis [Unknown]

NARRATIVE: CASE EVENT DATE: 20241003
